FAERS Safety Report 22303995 (Version 1)
Quarter: 2023Q2

REPORT INFORMATION
  Report Type: Spontaneous
  Country: US (occurrence: US)
  Receive Date: 20230510
  Receipt Date: 20230510
  Transmission Date: 20230722
  Serious: Yes (Other)
  Sender: FDA-Public Use
  Company Number: US-AMERICAN REGENT INC-2023001087

PATIENT
  Age: 54 Year
  Sex: Male

DRUGS (9)
  1. LIDOCAINE HYDROCHLORIDE [Suspect]
     Active Substance: LIDOCAINE HYDROCHLORIDE
     Indication: Neuralgia
     Dosage: 1.5 MG/KG/HR
     Route: 042
  2. METHAMPHETAMINE [Suspect]
     Active Substance: METHAMPHETAMINE
     Dosage: UNK
     Route: 065
  3. SUBOXONE [Concomitant]
     Active Substance: BUPRENORPHINE HYDROCHLORIDE\NALOXONE HYDROCHLORIDE
     Indication: Neuralgia
     Dosage: UNK
     Route: 065
  4. SUBOXONE [Concomitant]
     Active Substance: BUPRENORPHINE HYDROCHLORIDE\NALOXONE HYDROCHLORIDE
     Indication: Opioid sparing treatment
  5. CLONIDINE [Concomitant]
     Active Substance: CLONIDINE
     Indication: Neuralgia
     Dosage: UNK
     Route: 065
  6. CLONIDINE [Concomitant]
     Active Substance: CLONIDINE
     Indication: Opioid sparing treatment
  7. GABAPENTIN [Concomitant]
     Active Substance: GABAPENTIN
     Indication: Neuralgia
     Dosage: UNK
     Route: 065
  8. GABAPENTIN [Concomitant]
     Active Substance: GABAPENTIN
     Indication: Opioid sparing treatment
  9. HYDROMORPHONE [Concomitant]
     Active Substance: HYDROMORPHONE
     Indication: Neuralgia
     Dosage: UNK
     Route: 065

REACTIONS (10)
  - Hyperhidrosis [Recovered/Resolved]
  - Disturbance in attention [Recovered/Resolved]
  - Psychomotor hyperactivity [Recovered/Resolved]
  - Gait disturbance [Recovered/Resolved]
  - Autoscopy [Recovered/Resolved]
  - Emotional distress [Recovered/Resolved]
  - Hypoaesthesia [Recovered/Resolved]
  - Restlessness [Recovered/Resolved]
  - Confusional state [Recovered/Resolved]
  - Product use in unapproved indication [Unknown]
